FAERS Safety Report 4862547-3 (Version None)
Quarter: 2005Q4

REPORT INFORMATION
  Report Type: 
  Country: None (occurrence: None)
  Receive Date: 20051221
  Receipt Date: 20051108
  Transmission Date: 20060501
  Serious: Yes (Hospitalization)
  Sender: FDA-Public Use
  Company Number: JP-JPN-A20052699

PATIENT
  Age: 22 Year
  Sex: Male
  Weight: 51 kg

DRUGS (1)
  1. FLUTICASONE PROPIONATE [Suspect]
     Indication: RHINITIS PERENNIAL
     Dosage: 100MCG TWICE PER DAY
     Route: 045
     Dates: start: 20051022, end: 20051027

REACTIONS (7)
  - GINGIVITIS [None]
  - HERPES SIMPLEX [None]
  - ORAL MUCOSAL BLISTERING [None]
  - ORAL PAIN [None]
  - PYREXIA [None]
  - TONSILLAR HYPERTROPHY [None]
  - TRIGEMINAL NEURALGIA [None]
